FAERS Safety Report 12883915 (Version 1)
Quarter: 2016Q4

REPORT INFORMATION
  Report Type: Spontaneous
  Country: US (occurrence: US)
  Receive Date: 20161026
  Receipt Date: 20161026
  Transmission Date: 20170207
  Serious: No
  Sender: FDA-Public Use
  Company Number: US-PFIZER INC-2016489669

PATIENT
  Age: 49 Year
  Sex: Female

DRUGS (5)
  1. PIROXICAM. [Concomitant]
     Active Substance: PIROXICAM
     Dosage: 20 MG, DAILY
  2. METHOTREXATE SODIUM. [Suspect]
     Active Substance: METHOTREXATE SODIUM
     Indication: RHEUMATOID ARTHRITIS
     Dosage: 6 DF, WEEKLY
     Dates: start: 201404, end: 201608
  3. ARAVA [Concomitant]
     Active Substance: LEFLUNOMIDE
     Dosage: 20 MG, DAILY
  4. METHOTREXATE SODIUM. [Suspect]
     Active Substance: METHOTREXATE SODIUM
     Dosage: 5 DF, WEEKLY
  5. PREDNISONE. [Concomitant]
     Active Substance: PREDNISONE
     Dosage: 5 MG, DAILY

REACTIONS (5)
  - Fatigue [Unknown]
  - Drug ineffective [Unknown]
  - Blood pressure increased [Unknown]
  - Asthenia [Unknown]
  - Hepatic enzyme increased [Unknown]
